FAERS Safety Report 4930574-3 (Version None)
Quarter: 2006Q1

REPORT INFORMATION
  Report Type: 
  Country: None (occurrence: None)
  Receive Date: 20060302
  Receipt Date: 20050113
  Transmission Date: 20060701
  Serious: Yes (Other)
  Sender: FDA-Public Use
  Company Number: US-MERCK-0501USA01781

PATIENT
  Age: 54 Year
  Sex: Female

DRUGS (1)
  1. VIOXX [Suspect]
     Route: 048
     Dates: start: 20010201, end: 20030101

REACTIONS (5)
  - CHEST DISCOMFORT [None]
  - DYSPNOEA EXERTIONAL [None]
  - MUSCULOSKELETAL DISORDER [None]
  - MYOCARDIAL INFARCTION [None]
  - PALPITATIONS [None]
